FAERS Safety Report 9635438 (Version 3)
Quarter: 2014Q1

REPORT INFORMATION
  Report Type: Spontaneous
  Country: DE (occurrence: DE)
  Receive Date: 20131021
  Receipt Date: 20140214
  Transmission Date: 20141002
  Serious: Yes (Hospitalization, Other)
  Sender: FDA-Public Use
  Company Number: DE-AMGEN-DEUSP2013073033

PATIENT
  Age: 87 Year
  Sex: Female
  Weight: 44 kg

DRUGS (6)
  1. PROLIA [Suspect]
     Indication: OSTEOPOROSIS POSTMENOPAUSAL
     Dosage: 60 MG, Q6MO
     Route: 058
     Dates: start: 20121201, end: 20130601
  2. CALCIUM [Concomitant]
  3. CANDESARTAN [Concomitant]
     Dosage: 16 MG, QD
  4. HYDROCHLOROTHIAZIDE [Concomitant]
     Dosage: 12.5 MG, QD
  5. AMLODIPINE [Concomitant]
     Dosage: 10 MG, QD
  6. ATORVASTATIN [Concomitant]
     Dosage: 10 MG, QD

REACTIONS (2)
  - Femur fracture [Recovering/Resolving]
  - Injury [Unknown]
